FAERS Safety Report 21330594 (Version 1)
Quarter: 2022Q3

REPORT INFORMATION
  Report Type: Spontaneous
  Country: US (occurrence: None)
  Receive Date: 20220913
  Receipt Date: 20220913
  Transmission Date: 20221027
  Serious: Yes (Hospitalization)
  Sender: FDA-Public Use
  Company Number: None

PATIENT
  Age: 56 Year
  Sex: Male

DRUGS (1)
  1. SULFAMETHOXAZOLE\TRIMETHOPRIM [Suspect]
     Active Substance: SULFAMETHOXAZOLE\TRIMETHOPRIM
     Indication: Urinary tract infection
     Dosage: 800/160 MG BID PO
     Route: 048
     Dates: start: 20220816, end: 20220816

REACTIONS (9)
  - Rash [None]
  - Pruritus [None]
  - Urticaria [None]
  - Hypoaesthesia oral [None]
  - Chest pain [None]
  - Dyspnoea [None]
  - Photosensitivity reaction [None]
  - Vision blurred [None]
  - Hypotension [None]

NARRATIVE: CASE EVENT DATE: 20220816
